FAERS Safety Report 9523481 (Version 1)
Quarter: 2013Q3

REPORT INFORMATION
  Report Type: Spontaneous
  Country: US (occurrence: US)
  Receive Date: 20130913
  Receipt Date: 20130913
  Transmission Date: 20140515
  Serious: Yes (Other)
  Sender: FDA-Public Use
  Company Number: US-ASTRAZENECA-2013SE68250

PATIENT
  Sex: 0

DRUGS (1)
  1. FASLODEX [Suspect]
     Dosage: 500MG
     Route: 030

REACTIONS (1)
  - Metastasis [Unknown]
